FAERS Safety Report 9281205 (Version 1)
Quarter: 2013Q2

REPORT INFORMATION
  Report Type: Spontaneous
  Country: US (occurrence: None)
  Receive Date: 20130508
  Receipt Date: 20130508
  Transmission Date: 20140414
  Serious: Yes (Life-Threatening, Hospitalization)
  Sender: FDA-Public Use
  Company Number: None

PATIENT
  Age: 60 Year
  Sex: Male
  Weight: 96.5 kg

DRUGS (2)
  1. VANCOMYCIN [Suspect]
     Indication: OSTEOMYELITIS
     Dosage: 1250 MG  BID  IV
     Route: 042
     Dates: start: 20130215, end: 20130225
  2. ENOXAPARIN (GENERIC) [Suspect]
     Dosage: 70 MG BID SQ
     Route: 058
     Dates: start: 20130220, end: 20130225

REACTIONS (2)
  - Haemoptysis [None]
  - Thrombocytopenia [None]
